FAERS Safety Report 11004038 (Version 1)
Quarter: 2015Q2

REPORT INFORMATION
  Report Type: Spontaneous
  Country: US (occurrence: US)
  Receive Date: 20150409
  Receipt Date: 20150409
  Transmission Date: 20150821
  Serious: No
  Sender: FDA-Public Use
  Company Number: US-SHIRE-US201503105

PATIENT
  Age: 24 Year
  Sex: Female
  Weight: 77.98 kg

DRUGS (3)
  1. LIALDA [Suspect]
     Active Substance: MESALAMINE
     Indication: CROHN^S DISEASE
     Dosage: UNK UNK, UNKNOWN
     Route: 048
     Dates: start: 201503
  2. RITUXAN [Concomitant]
     Active Substance: RITUXIMAB
     Indication: NEUROMYELITIS OPTICA
     Dosage: UNK, OTHER (EVERY 6 MONTHS)
     Route: 042
     Dates: start: 2012
  3. B12                                /00056201/ [Concomitant]
     Indication: NEUROMYELITIS OPTICA
     Dosage: UNK, UNKNOWN
     Route: 065
     Dates: start: 2012

REACTIONS (2)
  - Product use issue [Not Recovered/Not Resolved]
  - Skin exfoliation [Recovered/Resolved]

NARRATIVE: CASE EVENT DATE: 201503
